FAERS Safety Report 9206784 (Version 1)
Quarter: 2013Q1

REPORT INFORMATION
  Report Type: Spontaneous
  Country: US (occurrence: None)
  Receive Date: 20120731
  Receipt Date: 20120731
  Transmission Date: 20140127
  Serious: Yes (Other)
  Sender: FDA-Public Use
  Company Number: AMAG201203061

PATIENT
  Age: 33 Year
  Sex: Female
  Weight: 100.2 kg

DRUGS (6)
  1. FERAHEME (FERUMOXYTOL) INJECTION, 510MG [Suspect]
     Indication: IRON DEFICIENCY
     Dosage: IV PUSH
     Route: 042
     Dates: start: 20120620, end: 20120620
  2. CYMBALTA (DULOXETINE HYDROCHLORIDE) [Concomitant]
  3. LEXAPRO (ESCITALOPRAM OXALATE) [Concomitant]
  4. CLONAZEPAM (CLONAZEPAM) (CLONAZEPAM) [Concomitant]
  5. CLARINEX (DESLORATADINE) [Concomitant]
  6. NORMAL SALINE (NORMAL SALINE) [Concomitant]

REACTIONS (7)
  - Hypersensitivity [None]
  - Dyspnoea [None]
  - Throat tightness [None]
  - Erythema [None]
  - Flushing [None]
  - Hyperhidrosis [None]
  - Abdominal pain [None]
